FAERS Safety Report 4575569-7 (Version None)
Quarter: 2005Q1

REPORT INFORMATION
  Report Type: 
  Country: None (occurrence: None)
  Receive Date: 20050209
  Receipt Date: 20050131
  Transmission Date: 20050727
  Serious: Yes (Hospitalization)
  Sender: FDA-Public Use
  Company Number: PHBS2005GT01731

PATIENT
  Age: 19 Year
  Sex: Male

DRUGS (5)
  1. NEORAL [Suspect]
     Indication: RENAL TRANSPLANT
  2. IMURAN [Suspect]
     Indication: SYSTEMIC LUPUS ERYTHEMATOSUS
  3. CELLCEPT [Suspect]
     Indication: RENAL TRANSPLANT
  4. PREDNISONE [Suspect]
     Indication: RENAL TRANSPLANT
  5. CERTICAN [Suspect]
     Indication: RENAL TRANSPLANT

REACTIONS (3)
  - BONE MARROW DEPRESSION [None]
  - FEBRILE NEUTROPENIA [None]
  - PNEUMONIA [None]
